FAERS Safety Report 10253854 (Version 1)
Quarter: 2014Q2

REPORT INFORMATION
  Report Type: Report from Study
  Country: GR (occurrence: GR)
  Receive Date: 20140623
  Receipt Date: 20140623
  Transmission Date: 20141212
  Serious: Yes (Life-Threatening, Hospitalization)
  Sender: FDA-Public Use
  Company Number: GR-US-EMD SERONO, INC.-7300321

PATIENT
  Age: 65 Year
  Sex: Male
  Weight: 65 kg

DRUGS (3)
  1. REBIF [Suspect]
     Indication: MULTIPLE SCLEROSIS
     Route: 058
     Dates: start: 20140513, end: 20140521
  2. REBIF [Suspect]
     Route: 058
     Dates: start: 20140609
  3. GLUCOPHAGE                         /00082701/ [Concomitant]
     Indication: DIABETES MELLITUS
     Route: 048
     Dates: start: 1999

REACTIONS (3)
  - Myocardial infarction [Recovering/Resolving]
  - Chest pain [Recovering/Resolving]
  - Coronary artery occlusion [Recovering/Resolving]
